FAERS Safety Report 12651390 (Version 2)
Quarter: 2017Q2

REPORT INFORMATION
  Report Type: Report from Study
  Country: US (occurrence: US)
  Receive Date: 20160815
  Receipt Date: 20170615
  Transmission Date: 20170830
  Serious: Yes (Other)
  Sender: FDA-Public Use
  Company Number: US-AMGEN-USASL2016103334

PATIENT
  Age: 61 Year
  Sex: Female

DRUGS (3)
  1. ENBREL [Suspect]
     Active Substance: ETANERCEPT
     Indication: RHEUMATOID ARTHRITIS
     Dosage: UNK
     Route: 065
  2. GABAPENTIN. [Concomitant]
     Active Substance: GABAPENTIN
     Dosage: UNK
  3. ENBREL [Suspect]
     Active Substance: ETANERCEPT
     Dosage: 50 MG, QWK
     Route: 065
     Dates: start: 2017

REACTIONS (12)
  - Feeling cold [Unknown]
  - Nervousness [Unknown]
  - Muscle spasms [Unknown]
  - Skin mass [Unknown]
  - Limb discomfort [Unknown]
  - Therapeutic response shortened [Unknown]
  - Blister [Unknown]
  - Wrong technique in product usage process [Unknown]
  - Rheumatoid arthritis [Unknown]
  - Coordination abnormal [Unknown]
  - Pain [Unknown]
  - Injection site pain [Unknown]

NARRATIVE: CASE EVENT DATE: 2017
